FAERS Safety Report 11118310 (Version 1)
Quarter: 2015Q2

REPORT INFORMATION
  Report Type: Spontaneous
  Country: JP (occurrence: None)
  Receive Date: 20150514
  Receipt Date: 20150514
  Transmission Date: 20150821
  Serious: Yes (Other)
  Sender: FDA-Public Use
  Company Number: 2015JUB00133

PATIENT
  Age: 84 Year
  Sex: Female

DRUGS (2)
  1. ALENDRONATE [Suspect]
     Active Substance: ALENDRONATE SODIUM
     Indication: OSTEOPOROSIS
  2. GLIBENCLAMIDE [Concomitant]
     Active Substance: GLYBURIDE

REACTIONS (3)
  - Osteonecrosis of jaw [None]
  - Bacterial infection [None]
  - Oral cavity fistula [None]

NARRATIVE: CASE EVENT DATE: 2012
